FAERS Safety Report 6892909-4 (Version None)
Quarter: 2010Q3

REPORT INFORMATION
  Report Type: 
  Country: None (occurrence: None)
  Receive Date: 20100731
  Receipt Date: 20081104
  Transmission Date: 20110219
  Serious: No
  Sender: FDA-Public Use
  Company Number: US-PFIZER INC-2008092848

PATIENT
  Sex: Female
  Weight: 76.818 kg

DRUGS (4)
  1. NORVASC [Suspect]
     Indication: HYPERTENSION
     Dates: start: 20060101, end: 20081101
  2. BENICAR [Suspect]
     Indication: HYPERTENSION
     Dates: start: 20081001, end: 20081101
  3. LEVOTHYROXINE SODIUM [Concomitant]
  4. ZIAC [Concomitant]

REACTIONS (1)
  - MUSCLE SPASMS [None]
